FAERS Safety Report 9419802 (Version 8)
Quarter: 2013Q4

REPORT INFORMATION
  Report Type: Spontaneous
  Country: US (occurrence: US)
  Receive Date: 20130725
  Receipt Date: 20131230
  Transmission Date: 20140711
  Serious: Yes (Life-Threatening, Hospitalization, Other)
  Sender: FDA-Public Use
  Company Number: US-B.I. PHARMACEUTICALS,INC./RIDGEFIELD-2013-BI-21858YA

PATIENT
  Age: 66 Year
  Sex: Male
  Weight: 84 kg

DRUGS (46)
  1. TAMSULOSIN CAPSULES [Suspect]
     Indication: NEPHROLITHIASIS
     Dosage: 0.4 MG
     Route: 048
     Dates: start: 20120905
  2. FIDAXOMICIN BLINDED [Suspect]
     Indication: PROPHYLAXIS
     Dosage: 1 ANZ
     Route: 048
     Dates: start: 20130614, end: 20130619
  3. MICAFUNGIN (MICAFUNGIN) [Suspect]
     Indication: ANTIFUNGAL PROPHYLAXIS
     Dosage: 50 MG
     Route: 042
     Dates: start: 20130614
  4. MICAFUNGIN (MICAFUNGIN) [Suspect]
     Dosage: INJECTION
     Route: 042
     Dates: start: 20130614
  5. TACROLIMUS SYSTEMIC [Suspect]
     Indication: PROPHYLAXIS AGAINST GRAFT VERSUS HOST DISEASE
     Dosage: 04-1.2MG
     Route: 042
     Dates: start: 20130619, end: 20130701
  6. TACROLIMUS SYSTEMIC [Suspect]
     Dosage: 1.5-3 MG
     Route: 048
     Dates: start: 20130702
  7. ACETAMINOPHEN [Concomitant]
     Dates: start: 20130612, end: 20130712
  8. DIPHENHYDRAMINE [Concomitant]
     Dates: start: 20130612, end: 20130709
  9. ZOLPIDEM [Concomitant]
     Dates: start: 20120905, end: 20130711
  10. CITALOPRAM [Concomitant]
     Dates: start: 20120803, end: 20130705
  11. URSODIOL [Concomitant]
     Dates: start: 20130612
  12. ACYCLOVIR [Concomitant]
     Dates: start: 20130618
  13. CYCLOSPORINE [Concomitant]
     Dates: start: 20130528
  14. LEVOFLOXACIN [Concomitant]
     Dates: start: 20130619, end: 20130717
  15. VANCOMYCIN [Concomitant]
     Dates: start: 20130619, end: 20130710
  16. ERGOCALCIFEROL [Concomitant]
     Dates: start: 20130620
  17. MAGNESIUM SULFATE [Concomitant]
     Dates: start: 20130621
  18. SUCRALFATE [Concomitant]
     Dates: start: 20130621, end: 20130714
  19. LORAZEPAM [Concomitant]
     Dates: start: 20120808, end: 20130711
  20. HYDROMORPHONE [Concomitant]
     Dates: start: 20130111
  21. METRONIDAZOLE [Concomitant]
     Dates: start: 20130625, end: 20130703
  22. IRBESARTAN [Concomitant]
     Dates: start: 20120707
  23. OMEPRAZOLE [Concomitant]
     Dates: start: 20120707
  24. GABAPENTIN [Concomitant]
     Dates: start: 20130702
  25. METHYLPREDNISOLONE [Concomitant]
     Dates: start: 20130709, end: 20130720
  26. PHYTONADIONE [Concomitant]
     Dates: start: 20130707, end: 20130712
  27. POTASSIUM CHLORIDE [Concomitant]
     Dates: start: 20130702, end: 20130709
  28. SARGRAMOSTIM [Concomitant]
     Dates: start: 20130703, end: 20130710
  29. TRIAMCINOLONE [Concomitant]
     Dosage: STRENGTH; 0.1%
     Dates: start: 20130706, end: 20130723
  30. FILGRASTIM [Concomitant]
     Indication: DELAYED ENGRAFTMENT
     Dates: start: 20130627, end: 20130709
  31. DULOXETINE [Concomitant]
     Dates: start: 20130705, end: 20130717
  32. TRAZODONE [Concomitant]
     Dates: start: 20130711, end: 20130711
  33. THIAMINE [Concomitant]
     Dates: start: 20130705, end: 20130705
  34. FUROSEMIDE [Concomitant]
     Dates: start: 20130615, end: 20130721
  35. FUROSEMIDE [Concomitant]
     Dates: start: 20130705, end: 20130705
  36. FOLIC ACID [Concomitant]
     Dates: start: 20130705, end: 20130705
  37. LEUCOVORIN [Concomitant]
     Dates: start: 20130701, end: 20130702
  38. INSULIN GLARGINE [Concomitant]
     Dates: start: 20130711
  39. INSULIN LISPRO [Concomitant]
     Dates: start: 20130710, end: 20130731
  40. HYDROXYZINE [Concomitant]
     Dates: start: 20130710, end: 20130710
  41. LOPERAMIDE [Concomitant]
     Dates: start: 20130707, end: 20130707
  42. MINERAL OIL W/PETROLATUM [Concomitant]
     Dates: start: 20130628, end: 20130718
  43. OXYMETHAZOLINE [Concomitant]
     Dosage: STRENGTH: 0.05%
     Dates: start: 20130626, end: 20130709
  44. LIPID EMULSION [Concomitant]
     Dosage: STRENGTH: 20%
     Dates: start: 20130625, end: 20130708
  45. PARENTERAL (CALCIUM CHLORIDE HEXAHYDRATE, POTASSIUM CHLORIDE, SODIUM A [Concomitant]
     Dates: start: 20130625, end: 20130711
  46. LEVETIRACETAM [Concomitant]
     Dates: start: 20130712, end: 20130719

REACTIONS (1)
  - Haemorrhage intracranial [Recovered/Resolved]
